FAERS Safety Report 17712299 (Version 2)
Quarter: 2020Q3

REPORT INFORMATION
  Report Type: Spontaneous
  Country: DE (occurrence: DE)
  Receive Date: 20200427
  Receipt Date: 20200925
  Transmission Date: 20201102
  Serious: Yes (Hospitalization)
  Sender: FDA-Public Use
  Company Number: DE-GLENMARK PHARMACEUTICALS-2019GMK044203

PATIENT

DRUGS (3)
  1. NEBIVOLOL GLENMARK 5MG TABLETTEN [Suspect]
     Active Substance: NEBIVOLOL
     Dosage: 2.5 MILLIGRAM, AM (HALF OF A TABLET OF 5 MG DAILY IN THE MORNING WITH A GLASS OF WATER)
     Route: 048
     Dates: start: 2020
  2. NEBIVOLOL GLENMARK 5MG TABLETTEN [Suspect]
     Active Substance: NEBIVOLOL
     Dosage: 5 MG, AM (WHOLE TABLET WITH A GLASS OF WATER)
     Route: 048
     Dates: start: 20191109
  3. NEBIVOLOL GLENMARK 5MG TABLETTEN [Suspect]
     Active Substance: NEBIVOLOL
     Indication: ESSENTIAL HYPERTENSION
     Dosage: 2.5 MG AM (HALF OF A TABLET OF 5 MG WITH A GLASS OF WATER)
     Route: 048
     Dates: start: 20191102, end: 20191108

REACTIONS (4)
  - Blood pressure fluctuation [Recovered/Resolved]
  - Ocular discomfort [Recovered/Resolved]
  - Heart rate decreased [Recovered/Resolved]
  - Headache [Recovered/Resolved]

NARRATIVE: CASE EVENT DATE: 201911
